FAERS Safety Report 6785031-9 (Version None)
Quarter: 2010Q2

REPORT INFORMATION
  Report Type: 
  Country: None (occurrence: None)
  Receive Date: 20100622
  Receipt Date: 20100604
  Transmission Date: 20101027
  Serious: Yes (Other)
  Sender: FDA-Public Use
  Company Number: US-WYE-H01592507

PATIENT
  Sex: Female

DRUGS (5)
  1. PREMARIN [Suspect]
  2. NORETHIDRONE ACETATE [Suspect]
  3. MEDROXYPROGESTERONE ACETATE [Suspect]
  4. PREMPRO [Suspect]
  5. MEDROXYPROGESTERONE ACETATE [Suspect]

REACTIONS (1)
  - BREAST CANCER METASTATIC [None]
